FAERS Safety Report 7442782-0 (Version None)
Quarter: 2011Q2

REPORT INFORMATION
  Report Type: 
  Country: None (occurrence: None)
  Receive Date: 20110428
  Receipt Date: 20110419
  Transmission Date: 20111010
  Serious: Yes (Hospitalization)
  Sender: FDA-Public Use
  Company Number: NZ-JNJFOC-20101205681

PATIENT
  Sex: Female
  Weight: 83 kg

DRUGS (18)
  1. GOLIMUMAB [Suspect]
     Route: 058
  2. METHOTREXATE [Suspect]
     Route: 048
  3. ALENDRONATE SODIUM [Concomitant]
     Route: 048
  4. METHOTREXATE [Suspect]
     Indication: RHEUMATOID ARTHRITIS
     Route: 048
  5. PRILOSEC [Concomitant]
     Route: 048
  6. METOPROLOL [Concomitant]
     Route: 048
  7. ACETAMINOPHEN [Concomitant]
     Route: 048
  8. VITAMIN A [Concomitant]
     Route: 061
  9. GOLIMUMAB [Suspect]
     Indication: RHEUMATOID ARTHRITIS
     Route: 058
  10. RENOXYL [Concomitant]
     Route: 048
  11. ASPIRIN [Concomitant]
     Route: 048
  12. FOLIC ACID [Concomitant]
     Route: 048
  13. CODEINE PHOSPHATE [Concomitant]
     Route: 048
  14. INHIBACE [Concomitant]
     Route: 048
  15. CALCIUM [Concomitant]
     Route: 048
  16. DERMALAN [Concomitant]
     Route: 061
  17. PLACEBO [Suspect]
     Indication: RHEUMATOID ARTHRITIS
     Route: 058
  18. FRAGADOR [Concomitant]
     Route: 048

REACTIONS (4)
  - LOBAR PNEUMONIA [None]
  - BILIARY COLIC [None]
  - INCISION SITE CELLULITIS [None]
  - RHEUMATOID ARTHRITIS [None]
